FAERS Safety Report 5257210-3 (Version None)
Quarter: 2007Q1

REPORT INFORMATION
  Report Type: 
  Country: None (occurrence: None)
  Receive Date: 20070307
  Receipt Date: 20070302
  Transmission Date: 20070707
  Serious: Yes (Hospitalization)
  Sender: FDA-Public Use
  Company Number: IT-GLAXOSMITHKLINE-B0460958A

PATIENT
  Age: 76 Year
  Sex: Female

DRUGS (15)
  1. LANOXIN [Suspect]
     Indication: CARDIAC FAILURE
     Dosage: .13MG PER DAY
     Route: 048
     Dates: start: 20040101, end: 20060817
  2. ALLOPURINOL [Concomitant]
     Route: 048
  3. AMIODAR [Concomitant]
     Route: 048
  4. CARVEDILOL [Concomitant]
     Route: 048
  5. LASIX [Concomitant]
     Route: 048
  6. GLYCERYL TRINITRATE [Concomitant]
     Route: 062
  7. HUMALOG [Concomitant]
  8. HUMULIN R [Concomitant]
  9. LANSOPRAZOLE [Concomitant]
  10. LORAZEPAM [Concomitant]
     Route: 048
  11. OMEGA 3 FATTY ACIDS [Concomitant]
  12. KANRENOL [Concomitant]
     Route: 048
  13. TRIATEC [Concomitant]
     Route: 048
  14. SIVASTIN [Concomitant]
  15. TICLID [Concomitant]
     Route: 048

REACTIONS (7)
  - ABDOMINAL PAIN UPPER [None]
  - ATRIAL FIBRILLATION [None]
  - BRADYARRHYTHMIA [None]
  - BRADYCARDIA [None]
  - HYPERKALAEMIA [None]
  - HYPONATRAEMIA [None]
  - RENAL FAILURE [None]
